FAERS Safety Report 7231253-2 (Version None)
Quarter: 2011Q1

REPORT INFORMATION
  Report Type: 
  Country: None (occurrence: None)
  Receive Date: 20110118
  Receipt Date: 20110110
  Transmission Date: 20110831
  Serious: Yes (Other)
  Sender: FDA-Public Use
  Company Number: US-JNJFOC-20101106192

PATIENT
  Sex: Female
  Weight: 48.54 kg

DRUGS (6)
  1. REMICADE [Suspect]
     Indication: CROHN'S DISEASE
     Dosage: 5 MG/KG (TOTAL 34 INFUSIONS)
     Route: 042
  2. CALCIUM 500 + D [Concomitant]
  3. IRON [Concomitant]
  4. MULTI-VITAMINS [Concomitant]
  5. ASACOL [Concomitant]
  6. FOSAMAX [Concomitant]

REACTIONS (1)
  - HODGKIN'S DISEASE [None]
